FAERS Safety Report 10426326 (Version 1)
Quarter: 2014Q3

REPORT INFORMATION
  Report Type: Spontaneous
  Country: US (occurrence: None)
  Receive Date: 20140902
  Receipt Date: 20140902
  Transmission Date: 20150326
  Serious: No
  Sender: FDA-Public Use
  Company Number: None

PATIENT
  Age: 75 Year
  Sex: Male
  Weight: 125.65 kg

DRUGS (2)
  1. ASPRIN [Concomitant]
     Active Substance: ASPIRIN
  2. PIOGLITAZONE HCL ACCORD HEALTH [Suspect]
     Active Substance: PIOGLITAZONE
     Indication: DIABETES MELLITUS
     Route: 048
     Dates: start: 201302, end: 20140812

REACTIONS (2)
  - Blood urine present [None]
  - Bladder cancer [None]

NARRATIVE: CASE EVENT DATE: 20140630
